FAERS Safety Report 15238581 (Version 3)
Quarter: 2018Q3

REPORT INFORMATION
  Report Type: Spontaneous
  Country: US (occurrence: US)
  Receive Date: 20180803
  Receipt Date: 20180925
  Transmission Date: 20181010
  Serious: Yes (Other)
  Sender: FDA-Public Use
  Company Number: US-COOPERSURGICAL, INC.-US-2018CPS032583

PATIENT

DRUGS (3)
  1. RECLIPSEN [Concomitant]
     Active Substance: DESOGESTREL\ETHINYL ESTRADIOL
     Indication: PRODUCT USED FOR UNKNOWN INDICATION
     Dosage: UNK
     Route: 065
  2. PARAGARD T 380A [Suspect]
     Active Substance: COPPER
     Indication: CONTRACEPTION
     Dosage: UNK
     Route: 015
     Dates: start: 2008, end: 20180517
  3. ORAL CONTRACEPTIVE NOS [Concomitant]
     Active Substance: UNSPECIFIED INGREDIENT
     Indication: CONTRACEPTION
     Dosage: UNK
     Route: 048

REACTIONS (6)
  - Pelvic pain [Recovered/Resolved]
  - Device breakage [Recovered/Resolved]
  - Embedded device [None]
  - Complication of device removal [Recovered/Resolved]
  - Pain [Recovered/Resolved]
  - Foreign body in reproductive tract [Recovered/Resolved]

NARRATIVE: CASE EVENT DATE: 2018
